FAERS Safety Report 8455340-6 (Version None)
Quarter: 2012Q2

REPORT INFORMATION
  Report Type: 
  Country: None (occurrence: None)
  Receive Date: 20120621
  Receipt Date: 20120615
  Transmission Date: 20120825
  Serious: Yes (Hospitalization)
  Sender: FDA-Public Use
  Company Number: JP-ABBOTT-10P-087-0686113-00

PATIENT
  Age: 63 Year
  Sex: Female

DRUGS (19)
  1. RANITIDINE HCL [Concomitant]
     Indication: PROPHYLAXIS AGAINST GASTROINTESTINAL ULCER
     Dosage: 300MG DAILY
  2. GLIMEPIRIDE [Concomitant]
     Indication: PRODUCT USED FOR UNKNOWN INDICATION
     Dosage: 2MG DAILY
  3. ISONIAZID [Concomitant]
     Indication: ANTIBIOTIC PROPHYLAXIS
     Dosage: 300MG DAILY
     Dates: end: 20100623
  4. DICLOFENAC SODIUM [Concomitant]
     Indication: RHEUMATOID ARTHRITIS
     Dosage: 25MG DAILY
     Dates: end: 20100216
  5. PREDNISOLONE [Concomitant]
     Indication: RHEUMATOID ARTHRITIS
     Dosage: 4MG DAILY
     Route: 048
     Dates: start: 20100216, end: 20100315
  6. SULFADIAZINE [Concomitant]
     Indication: PRODUCT USED FOR UNKNOWN INDICATION
     Dosage: 100G DAILY
     Dates: start: 20090901, end: 20110314
  7. CLOBETASOL PROPIONATE [Concomitant]
     Indication: PRODUCT USED FOR UNKNOWN INDICATION
     Route: 061
     Dates: end: 20110215
  8. KETOPROFEN [Concomitant]
     Indication: RHEUMATOID ARTHRITIS
     Dosage: 10 BAGS DAILY
     Dates: end: 20100705
  9. METHOTREXATE [Concomitant]
     Indication: RHEUMATOID ARTHRITIS
  10. PREDNISOLONE [Concomitant]
     Dosage: 2MG DAILY
     Dates: start: 20100511
  11. IODINE [Concomitant]
     Indication: PRODUCT USED FOR UNKNOWN INDICATION
     Dosage: 40G DAILY
     Dates: end: 20090908
  12. HUMIRA [Suspect]
     Indication: RHEUMATOID ARTHRITIS
     Route: 058
     Dates: start: 20090901
  13. PREDNISOLONE [Concomitant]
     Dosage: 3MG DAILY
     Dates: start: 20100316, end: 20100510
  14. ALFACALCIDOL [Concomitant]
     Indication: PRODUCT USED FOR UNKNOWN INDICATION
     Dosage: 0.5MCG DAILY
  15. FUROSEMIDE [Concomitant]
     Indication: OEDEMA PERIPHERAL
  16. LOXOPROFEN SODIUM HYDRATE [Concomitant]
     Indication: RHEUMATOID ARTHRITIS
     Dosage: 180MG DAILY
  17. FUROSEMIDE [Concomitant]
     Indication: PROPHYLAXIS
     Dosage: 40MG DAILY
  18. INSULIN HUMAN [Concomitant]
     Indication: PRODUCT USED FOR UNKNOWN INDICATION
     Dosage: 30 UNITS DAILY
  19. MISOPROSTOL [Concomitant]
     Indication: PROPHYLAXIS AGAINST GASTROINTESTINAL ULCER
     Dosage: 400MCG DAILY
     Dates: end: 20100412

REACTIONS (4)
  - HEPATIC FUNCTION ABNORMAL [None]
  - LUMBAR SPINAL STENOSIS [None]
  - HYPERTENSION [None]
  - SKIN ULCER [None]
